FAERS Safety Report 4470563-9 (Version None)
Quarter: 2004Q4

REPORT INFORMATION
  Report Type: 
  Country: None (occurrence: None)
  Receive Date: 20041001
  Receipt Date: 20040928
  Transmission Date: 20050328
  Serious: Yes (Other)
  Sender: FDA-Public Use
  Company Number: UKP04000367

PATIENT
  Age: 75 Year
  Sex: Female

DRUGS (2)
  1. DIDRONEL [Suspect]
     Indication: OSTEOPOROSIS
     Dosage: CYCLIC 1/D, ORAL
     Route: 048
     Dates: start: 19970101, end: 20030101
  2. LANSOPRAZOLE [Concomitant]

REACTIONS (4)
  - CARCINOID TUMOUR [None]
  - HEPATIC NEOPLASM [None]
  - LETHARGY [None]
  - WEIGHT DECREASED [None]
